FAERS Safety Report 7564996-1 (Version None)
Quarter: 2011Q2

REPORT INFORMATION
  Report Type: 
  Country: None (occurrence: None)
  Receive Date: 20110622
  Receipt Date: 20110428
  Transmission Date: 20111010
  Serious: Yes (Life-Threatening, Other)
  Sender: FDA-Public Use
  Company Number: US-MYLANLABS-2011S1005876

PATIENT
  Age: 56 Year
  Sex: Male
  Weight: 80.29 kg

DRUGS (3)
  1. CLOZAPINE [Suspect]
     Route: 048
     Dates: start: 20110106, end: 20110316
  2. HALDOL [Concomitant]
     Dosage: DOSAGE 20-30MG DAILY
     Dates: start: 20100701
  3. CLOZAPINE [Suspect]
     Indication: SCHIZOPHRENIA
     Route: 048
     Dates: start: 20110106, end: 20110316

REACTIONS (3)
  - AGRANULOCYTOSIS [None]
  - LEUKOPENIA [None]
  - GRANULOCYTOPENIA [None]
